FAERS Safety Report 7986527-4 (Version None)
Quarter: 2011Q4

REPORT INFORMATION
  Report Type: 
  Country: None (occurrence: None)
  Receive Date: 20111216
  Receipt Date: 20110721
  Transmission Date: 20120403
  Serious: No
  Sender: FDA-Public Use
  Company Number: US-BRISTOL-MYERS SQUIBB COMPANY-15916554

PATIENT
  Sex: Female

DRUGS (5)
  1. XANAX [Suspect]
  2. ABILIFY [Suspect]
  3. WELLBUTRIN SR [Suspect]
  4. PROZAC [Suspect]
  5. TRAZODONE HCL [Suspect]

REACTIONS (7)
  - NAUSEA [None]
  - MUSCLE TIGHTNESS [None]
  - FEELING COLD [None]
  - BACK PAIN [None]
  - FEELING HOT [None]
  - SOMNOLENCE [None]
  - HEADACHE [None]
